FAERS Safety Report 9269916 (Version 5)
Quarter: 2013Q4

REPORT INFORMATION
  Report Type: Spontaneous
  Country: US (occurrence: US)
  Receive Date: 20130503
  Receipt Date: 20131022
  Transmission Date: 20140711
  Serious: Yes (Other)
  Sender: FDA-Public Use
  Company Number: US-JNJFOC-20130415702

PATIENT
  Sex: Female

DRUGS (9)
  1. REMICADE [Suspect]
     Indication: CROHN^S DISEASE
     Dosage: 500 MG
     Route: 042
     Dates: start: 20130419
  2. REMICADE [Suspect]
     Indication: CROHN^S DISEASE
     Dosage: 500 MG
     Route: 042
     Dates: start: 20121128
  3. REMICADE [Suspect]
     Indication: CROHN^S DISEASE
     Dosage: 500 MG
     Route: 042
     Dates: start: 201003
  4. COREG [Concomitant]
     Route: 065
  5. SIMVASTATIN [Concomitant]
     Route: 065
  6. HCTZ [Concomitant]
     Route: 065
  7. ACETYLSALICYLIC ACID [Concomitant]
     Route: 065
  8. FISH OIL [Concomitant]
     Route: 065
  9. IMURAN [Concomitant]
     Route: 065

REACTIONS (4)
  - Breast lump removal [Unknown]
  - Hypertension [Unknown]
  - Bladder pain [Unknown]
  - Gastrointestinal pain [Unknown]
